FAERS Safety Report 17348409 (Version 1)
Quarter: 2020Q1

REPORT INFORMATION
  Report Type: Report from Study
  Country: US (occurrence: US)
  Receive Date: 20200129
  Receipt Date: 20200129
  Transmission Date: 20200409
  Serious: No
  Sender: FDA-Public Use
  Company Number: US-EXELIXIS-CABO-19024012

PATIENT
  Age: 74 Year
  Sex: Male

DRUGS (1)
  1. COMETRIQ [Suspect]
     Active Substance: CABOZANTINIB S-MALATE
     Indication: THYROID CANCER
     Dosage: 140 MG, QD (8 AM, WITHOUT FOOD, 1 CAPSULE OF 80 MG AND 3 CAPSULE OF 20 MG)
     Route: 048
     Dates: start: 20190903

REACTIONS (7)
  - Blister [Recovering/Resolving]
  - Dysphonia [Unknown]
  - Oral pain [Recovering/Resolving]
  - Ill-defined disorder [Unknown]
  - Dysphagia [Recovering/Resolving]
  - Decreased appetite [Unknown]
  - Fatigue [Unknown]

NARRATIVE: CASE EVENT DATE: 201909
